FAERS Safety Report 8077431-4 (Version None)
Quarter: 2012Q1

REPORT INFORMATION
  Report Type: 
  Country: None (occurrence: None)
  Receive Date: 20120127
  Receipt Date: 20120119
  Transmission Date: 20120608
  Serious: Yes (Other)
  Sender: FDA-Public Use
  Company Number: PHEH2010US01931

PATIENT
  Sex: Male

DRUGS (5)
  1. HUMALOG [Concomitant]
     Dosage: UNK UKN, UNK
  2. NEORAL [Suspect]
     Indication: NEPHROTIC SYNDROME
     Dosage: 200 MG, BID
     Route: 048
     Dates: start: 20080101
  3. INSULIN [Concomitant]
     Indication: DIABETES MELLITUS
     Dosage: UNK UKN, UNK
     Dates: start: 20090101
  4. LASIX [Concomitant]
     Indication: SWELLING
     Dosage: UNK UKN, UNK
     Route: 048
  5. LISINOPRIL [Concomitant]
     Indication: BLOOD PRESSURE INCREASED
     Dosage: 10 MG, UNK
     Route: 048
     Dates: start: 20070101

REACTIONS (6)
  - NEPHROTIC SYNDROME [None]
  - PROTEIN URINE [None]
  - EXPIRED DRUG ADMINISTERED [None]
  - FLUID RETENTION [None]
  - DECREASED IMMUNE RESPONSIVENESS [None]
  - NASOPHARYNGITIS [None]
